FAERS Safety Report 4893275-6 (Version None)
Quarter: 2006Q1

REPORT INFORMATION
  Report Type: 
  Country: None (occurrence: None)
  Receive Date: 20060124
  Receipt Date: 20060110
  Transmission Date: 20060701
  Serious: Yes (Other)
  Sender: FDA-Public Use
  Company Number: 006382

PATIENT
  Age: 35 Year
  Sex: Female
  Weight: 118.4 kg

DRUGS (2)
  1. SEASONALE [Suspect]
     Indication: ORAL CONTRACEPTION
     Dosage: 1 TABLET, QD, ORAL
     Route: 048
     Dates: start: 20041004, end: 20051222
  2. PAXIL [Concomitant]

REACTIONS (2)
  - THROMBOSIS [None]
  - WITHDRAWAL BLEED [None]
